FAERS Safety Report 9911488 (Version 1)
Quarter: 2014Q1

REPORT INFORMATION
  Report Type: Spontaneous
  Country: PL (occurrence: PL)
  Receive Date: 20140219
  Receipt Date: 20140219
  Transmission Date: 20141002
  Serious: Yes (Other)
  Sender: FDA-Public Use
  Company Number: PHHY2014PL019013

PATIENT
  Age: 41 Year
  Sex: Female

DRUGS (8)
  1. MYFORTIC [Suspect]
     Indication: IMMUNOSUPPRESSION
     Dosage: UNK
  2. MYFORTIC [Suspect]
     Dosage: 1440 MG, DAILY
  3. MYFORTIC [Suspect]
     Dosage: 360 MG, TID
  4. THYMOGLOBULIN [Concomitant]
     Dosage: UNK
     Dates: start: 20130225
  5. PROGRAF [Concomitant]
     Indication: IMMUNOSUPPRESSION
     Dosage: 8 MG, DAILY
     Dates: start: 20130225
  6. PROGRAF [Concomitant]
     Dosage: 7 MG, TID
  7. STEROID [Concomitant]
     Dosage: UNK UKN, UNK
  8. ENCORTON [Concomitant]
     Indication: IMMUNOSUPPRESSION
     Dosage: 10 MG

REACTIONS (8)
  - Pulmonary embolism [Unknown]
  - Cytomegalovirus infection [Unknown]
  - Diarrhoea [Unknown]
  - Leukopenia [Unknown]
  - Pulmonary tuberculosis [Unknown]
  - Infection susceptibility increased [Unknown]
  - Escherichia urinary tract infection [Unknown]
  - Infection [Unknown]
